FAERS Safety Report 18075452 (Version 2)
Quarter: 2020Q4

REPORT INFORMATION
  Report Type: Spontaneous
  Country: US (occurrence: US)
  Receive Date: 20200727
  Receipt Date: 20201023
  Transmission Date: 20210113
  Serious: Yes (Other)
  Sender: FDA-Public Use
  Company Number: US-BRISTOL-MYERS SQUIBB COMPANY-BMS-2020-058707

PATIENT
  Sex: Female
  Weight: 41 kg

DRUGS (2)
  1. YERVOY [Suspect]
     Active Substance: IPILIMUMAB
     Indication: CERVIX CARCINOMA
     Dosage: 129 MILLIGRAM, Q3WK
     Route: 042
  2. OPDIVO [Suspect]
     Active Substance: NIVOLUMAB
     Indication: CERVIX CARCINOMA
     Dosage: 40 MILLIGRAM, Q3WK
     Route: 042
     Dates: start: 20200521

REACTIONS (2)
  - Malignant neoplasm progression [Unknown]
  - Intentional product use issue [Unknown]
